FAERS Safety Report 5949715-4 (Version None)
Quarter: 2008Q4

REPORT INFORMATION
  Report Type: 
  Country: None (occurrence: None)
  Receive Date: 20081112
  Receipt Date: 20081105
  Transmission Date: 20090506
  Serious: Yes (Hospitalization)
  Sender: FDA-Public Use
  Company Number: JP-WYE-H06592008

PATIENT
  Sex: Male

DRUGS (7)
  1. ZOSYN [Suspect]
     Indication: PNEUMONIA
     Route: 041
     Dates: start: 20081016, end: 20081021
  2. SPIRONOLACTONE [Concomitant]
     Route: 048
     Dates: start: 20080801
  3. KN-MG3 [Concomitant]
     Route: 041
     Dates: start: 20081013
  4. ASPIRIN [Concomitant]
     Route: 048
     Dates: start: 20080101
  5. AMINOTRIPA 2 [Concomitant]
     Dosage: UNKNOWN
     Dates: start: 20081013
  6. FUROSEMIDE [Concomitant]
     Route: 048
     Dates: start: 20080801
  7. TIEKAPTO [Concomitant]
     Route: 048
     Dates: start: 20080801

REACTIONS (4)
  - ALANINE AMINOTRANSFERASE INCREASED [None]
  - ASPARTATE AMINOTRANSFERASE INCREASED [None]
  - GAMMA-GLUTAMYLTRANSFERASE INCREASED [None]
  - LIVER DISORDER [None]
